FAERS Safety Report 8227408-0 (Version None)
Quarter: 2012Q1

REPORT INFORMATION
  Report Type: 
  Country: None (occurrence: None)
  Receive Date: 20120322
  Receipt Date: 20120306
  Transmission Date: 20120608
  Serious: Yes (Other)
  Sender: FDA-Public Use
  Company Number: LU-AMGEN-LUXSP2012004198

PATIENT
  Age: 42 Year
  Sex: Female

DRUGS (2)
  1. ENBREL [Suspect]
     Indication: PSORIASIS
     Dosage: 50 MG, WEEKLY
     Route: 058
     Dates: start: 20120109
  2. BISOPROLOL FUMARATE [Concomitant]
     Dosage: 2.5 MG, 3X/DAY
     Route: 048

REACTIONS (3)
  - MALAISE [None]
  - HYPERTENSION [None]
  - PALPITATIONS [None]
